FAERS Safety Report 4677569-5 (Version None)
Quarter: 2005Q2

REPORT INFORMATION
  Report Type: 
  Country: None (occurrence: None)
  Receive Date: 20050526
  Receipt Date: 20050526
  Transmission Date: 20051028
  Serious: Yes (Hospitalization)
  Sender: FDA-Public Use
  Company Number: None

PATIENT
  Age: 53 Year
  Sex: Male
  Weight: 195 kg

DRUGS (9)
  1. ADVIL COLD AND SINUS [Suspect]
     Indication: NASOPHARYNGITIS
     Dosage: 200 MG TID X 2 WEEKS
  2. MONOPRIL [Suspect]
     Indication: HYPERTENSION
     Dosage: 40 MG PO QD
     Route: 048
  3. ASPIRIN [Concomitant]
  4. BUPROPION [Concomitant]
  5. CLONIDINE [Concomitant]
  6. GLYBURIDE [Concomitant]
  7. METFORMIN [Concomitant]
  8. NIFEDIPINE [Concomitant]
  9. SIMVASTATIN [Concomitant]

REACTIONS (8)
  - BLOOD CREATININE INCREASED [None]
  - BODY TEMPERATURE INCREASED [None]
  - CAT SCRATCH DISEASE [None]
  - GROIN PAIN [None]
  - PROTEINURIA [None]
  - RENAL FAILURE ACUTE [None]
  - RENAL MASS [None]
  - RENAL PAPILLARY NECROSIS [None]
